FAERS Safety Report 4276711-8 (Version None)
Quarter: 2004Q1

REPORT INFORMATION
  Report Type: 
  Country: None (occurrence: None)
  Receive Date: 20040120
  Receipt Date: 20040108
  Transmission Date: 20041129
  Serious: No
  Sender: FDA-Public Use
  Company Number: 03P-167-0245841-00

PATIENT
  Age: 35 Year
  Sex: Female
  Weight: 92 kg

DRUGS (1)
  1. MERIDIA [Suspect]
     Indication: OBESITY
     Dosage: 10 MG, 1 IN 1 D, PER ORAL
     Route: 048
     Dates: start: 20031029, end: 20031219

REACTIONS (4)
  - BLOOD BILIRUBIN INCREASED [None]
  - JAUNDICE [None]
  - LETHARGY [None]
  - MALAISE [None]
